FAERS Safety Report 24313280 (Version 2)
Quarter: 2024Q3

REPORT INFORMATION
  Report Type: Spontaneous
  Country: FR (occurrence: FR)
  Receive Date: 20240912
  Receipt Date: 20240927
  Transmission Date: 20241016
  Serious: Yes (Other)
  Sender: TEVA
  Company Number: FR-TEVA-VS-3241027

PATIENT
  Age: 56 Year
  Sex: Male

DRUGS (3)
  1. CARBOPLATIN [Suspect]
     Active Substance: CARBOPLATIN
     Indication: Metastatic salivary gland cancer
     Route: 065
  2. NIVOLUMAB [Suspect]
     Active Substance: NIVOLUMAB
     Indication: Metastatic salivary gland cancer
     Route: 065
  3. TAXOTERE [Suspect]
     Active Substance: DOCETAXEL
     Indication: Metastatic salivary gland cancer
     Route: 065

REACTIONS (5)
  - Anaemia [Unknown]
  - Off label use [Unknown]
  - Drug ineffective [Unknown]
  - Dry mouth [Unknown]
  - Toxicity to various agents [Unknown]

NARRATIVE: CASE EVENT DATE: 20220101
